FAERS Safety Report 20876251 (Version 1)
Quarter: 2022Q2

REPORT INFORMATION
  Report Type: Spontaneous
  Country: IT (occurrence: None)
  Receive Date: 20220526
  Receipt Date: 20220526
  Transmission Date: 20220720
  Serious: Yes (Hospitalization)
  Sender: FDA-Public Use
  Company Number: IT-ROCHE-3102073

PATIENT
  Age: 49 Year
  Sex: Female

DRUGS (1)
  1. OCREVUS [Suspect]
     Active Substance: OCRELIZUMAB
     Indication: Multiple sclerosis
     Route: 042
     Dates: start: 202203

REACTIONS (4)
  - Multiple sclerosis relapse [Unknown]
  - Tremor [Unknown]
  - Balance disorder [Unknown]
  - Diplopia [Unknown]

NARRATIVE: CASE EVENT DATE: 20220501
